FAERS Safety Report 6037967-4 (Version None)
Quarter: 2009Q1

REPORT INFORMATION
  Report Type: 
  Country: None (occurrence: None)
  Receive Date: 20090113
  Receipt Date: 20090113
  Transmission Date: 20090719
  Serious: Yes (Hospitalization)
  Sender: FDA-Public Use
  Company Number: None

PATIENT
  Sex: Female
  Weight: 55.3388 kg

DRUGS (1)
  1. ISOSORBIDE UNKNOWN, I DISCARDED UNKNOWN, I DISCARDED [Suspect]
     Indication: ANGINA PECTORIS
     Dosage: UNKNOWN, I DISCARDED DAILY PO
     Route: 048
     Dates: start: 20081225, end: 20081226

REACTIONS (3)
  - HEADACHE [None]
  - PAIN IN EXTREMITY [None]
  - TREATMENT FAILURE [None]
